FAERS Safety Report 5267298-1 (Version None)
Quarter: 2007Q1

REPORT INFORMATION
  Report Type: 
  Country: None (occurrence: None)
  Receive Date: 20070316
  Receipt Date: 20070306
  Transmission Date: 20070707
  Serious: Yes (Other)
  Sender: FDA-Public Use
  Company Number: BE-GLAXOSMITHKLINE-B0459561A

PATIENT
  Age: 36 Year
  Sex: Male

DRUGS (3)
  1. LAMOTRIGINE [Suspect]
     Indication: DEPRESSION
     Dosage: 200MG PER DAY
     Route: 048
     Dates: start: 20061115, end: 20070110
  2. DOSULEPINE [Concomitant]
     Dosage: 50MG PER DAY
     Route: 065
  3. RISPERIDONE [Concomitant]
     Dosage: 3MG PER DAY
     Route: 065
     Dates: start: 19970101

REACTIONS (6)
  - EUPHORIC MOOD [None]
  - HYPOMANIA [None]
  - LOGORRHOEA [None]
  - MANIA [None]
  - PSYCHOMOTOR HYPERACTIVITY [None]
  - SELF ESTEEM INFLATED [None]
